FAERS Safety Report 8496877-3 (Version None)
Quarter: 2012Q3

REPORT INFORMATION
  Report Type: 
  Country: None (occurrence: None)
  Receive Date: 20120709
  Receipt Date: 20120628
  Transmission Date: 20120928
  Serious: Yes (Hospitalization)
  Sender: FDA-Public Use
  Company Number: CA-ELI_LILLY_AND_COMPANY-CA201206009706

PATIENT
  Age: 82 Year
  Sex: Female

DRUGS (7)
  1. LISINOPRIL [Concomitant]
  2. FORTEO [Suspect]
     Indication: OSTEOPOROSIS
     Dosage: 20 UG, QD
     Route: 058
     Dates: start: 20120209
  3. SYMBICORT [Concomitant]
  4. VENTOLIN                                /SCH/ [Concomitant]
  5. UNIPRIL [Concomitant]
  6. TIAZAC [Concomitant]
  7. SPIRIVA [Concomitant]

REACTIONS (1)
  - FRACTURE [None]
